FAERS Safety Report 23321526 (Version 1)
Quarter: 2023Q4

REPORT INFORMATION
  Report Type: Spontaneous
  Country: US (occurrence: US)
  Receive Date: 20231220
  Receipt Date: 20231220
  Transmission Date: 20240109
  Serious: No
  Sender: FDA-Public Use
  Company Number: US-Kaleo, Inc.-2023KL000060

PATIENT
  Age: 36 Year
  Sex: Male

DRUGS (1)
  1. AUVI-Q [Suspect]
     Active Substance: EPINEPHRINE
     Dates: start: 20231202, end: 20231202

REACTIONS (6)
  - Injection site paraesthesia [Recovered/Resolved]
  - Injection site pallor [Recovered/Resolved]
  - Injection site coldness [Recovered/Resolved]
  - Accidental exposure to product [Recovered/Resolved]
  - Device issue [Recovered/Resolved]
  - Device issue [Recovered/Resolved]

NARRATIVE: CASE EVENT DATE: 20231202
